FAERS Safety Report 5514175-4 (Version None)
Quarter: 2007Q4

REPORT INFORMATION
  Report Type: 
  Country: None (occurrence: None)
  Receive Date: 20071113
  Receipt Date: 20071105
  Transmission Date: 20080405
  Serious: Yes (Other)
  Sender: FDA-Public Use
  Company Number: GR-ROCHE-527592

PATIENT
  Sex: Female

DRUGS (2)
  1. BONIVA [Suspect]
     Indication: OSTEOPOROSIS
     Dosage: FORM REPORTED AS F. C. TABS.
     Route: 048
  2. 1 CONCOMITANT DRUG [Concomitant]
     Indication: HYPERTENSION
     Dosage: REPORTED AS CARDIOVASCULAR AGENT NOS.

REACTIONS (2)
  - PALPITATIONS [None]
  - TACHYCARDIA [None]
